FAERS Safety Report 7853070-2 (Version None)
Quarter: 2011Q4

REPORT INFORMATION
  Report Type: 
  Country: None (occurrence: None)
  Receive Date: 20111026
  Receipt Date: 20111025
  Transmission Date: 20120403
  Serious: Yes (Death, Hospitalization)
  Sender: FDA-Public Use
  Company Number: JP-JNJFOC-20111010338

PATIENT
  Age: 75 Year
  Sex: Male

DRUGS (4)
  1. TRAMADOL HYDROCHLORIDE/ACETAMINOPHEN [Suspect]
     Indication: PAIN
     Dosage: 1 PER 1 DAY
     Route: 048
  2. PROCHLORPERAZINE [Concomitant]
     Indication: ANTIEMETIC SUPPORTIVE CARE
     Route: 048
  3. VOLTAREN [Concomitant]
     Indication: ANALGESIC THERAPY
     Route: 048
  4. MUCOSTA [Concomitant]
     Indication: PROPHYLAXIS
     Route: 048

REACTIONS (2)
  - PANCREATITIS ACUTE [None]
  - CONDITION AGGRAVATED [None]
